FAERS Safety Report 7469573-9 (Version None)
Quarter: 2011Q2

REPORT INFORMATION
  Report Type: 
  Country: None (occurrence: None)
  Receive Date: 20110510
  Receipt Date: 20110503
  Transmission Date: 20111010
  Serious: Yes (Hospitalization, Other)
  Sender: FDA-Public Use
  Company Number: PHFR2011IE00897

PATIENT
  Sex: Female

DRUGS (4)
  1. CLOZARIL [Suspect]
     Indication: SCHIZOPHRENIA
     Dosage: 300 MG,
     Route: 048
     Dates: start: 20070807, end: 20110123
  2. CLOZARIL [Suspect]
     Dosage: 400 MG, UNK
     Route: 048
  3. CLOZARIL [Suspect]
     Dosage: 50 MG AM + 100 MG PM
     Route: 048
  4. CLOZARIL [Suspect]
     Dosage: 25 MG MANE, 50 MG NOCTE
     Route: 048

REACTIONS (7)
  - FALL [None]
  - ELECTROCARDIOGRAM ABNORMAL [None]
  - ANTIPSYCHOTIC DRUG LEVEL INCREASED [None]
  - MENTAL IMPAIRMENT [None]
  - LOSS OF CONSCIOUSNESS [None]
  - CONVULSION [None]
  - CONFUSIONAL STATE [None]
